FAERS Safety Report 10672414 (Version 1)
Quarter: 2014Q4

REPORT INFORMATION
  Report Type: Spontaneous
  Country: FR (occurrence: FR)
  Receive Date: 20141223
  Receipt Date: 20141223
  Transmission Date: 20150529
  Serious: Yes (Other)
  Sender: FDA-Public Use
  Company Number: FR-ABBVIE-14P-056-1323990-00

PATIENT

DRUGS (1)
  1. CHIROCAINE [Suspect]
     Active Substance: LEVOBUPIVACAINE HYDROCHLORIDE
     Indication: ANAESTHESIA
     Dosage: 5 MG
     Route: 065

REACTIONS (3)
  - Pain [Unknown]
  - Anaesthetic complication [Unknown]
  - Drug ineffective [Unknown]
